FAERS Safety Report 24601387 (Version 2)
Quarter: 2024Q4

REPORT INFORMATION
  Report Type: Spontaneous
  Country: US (occurrence: US)
  Receive Date: 20241111
  Receipt Date: 20241127
  Transmission Date: 20250114
  Serious: No
  Sender: ROCHE
  Company Number: US-ROCHE-10000124356

PATIENT
  Age: 46 Year
  Sex: Female
  Weight: 80.29 kg

DRUGS (2)
  1. ACTEMRA [Suspect]
     Active Substance: TOCILIZUMAB
     Indication: Rheumatoid arthritis
     Dosage: EVERY OTHER WEEK ON THURSDAY
     Route: 058
     Dates: start: 20241017
  2. METOPROLOL [Concomitant]
     Active Substance: METOPROLOL
     Indication: Cardiac disorder
     Dosage: 50MG IN THE MORNING AND 25MG IN THE EVENING
     Route: 048
     Dates: start: 2023

REACTIONS (4)
  - Exposure via skin contact [Unknown]
  - Device issue [Unknown]
  - Device defective [Unknown]
  - No adverse event [Unknown]

NARRATIVE: CASE EVENT DATE: 20241031
